FAERS Safety Report 8231115-8 (Version None)
Quarter: 2012Q1

REPORT INFORMATION
  Report Type: 
  Country: None (occurrence: None)
  Receive Date: 20120322
  Receipt Date: 20120322
  Transmission Date: 20120608
  Serious: No
  Sender: FDA-Public Use
  Company Number: None

PATIENT
  Age: 78 Year
  Sex: Female
  Weight: 70.306 kg

DRUGS (1)
  1. GABAPENTIN [Suspect]
     Indication: PARTIAL SEIZURES
     Dosage: 300 MG
     Route: 048
     Dates: start: 20111210, end: 20120229

REACTIONS (2)
  - PRODUCT SUBSTITUTION ISSUE [None]
  - HYPOAESTHESIA [None]
